FAERS Safety Report 8217793-8 (Version None)
Quarter: 2012Q1

REPORT INFORMATION
  Report Type: 
  Country: None (occurrence: None)
  Receive Date: 20120315
  Receipt Date: 20120301
  Transmission Date: 20120608
  Serious: Yes (Hospitalization)
  Sender: FDA-Public Use
  Company Number: 2012030040

PATIENT
  Sex: Male
  Weight: 89 kg

DRUGS (8)
  1. SINTROM [Concomitant]
  2. SPIRIVA [Concomitant]
  3. SALMETEROL  (SALMETEROL ) [Concomitant]
  4. CEFTRIAXONE [Suspect]
     Indication: ACUTE ENDOCARDITIS
     Dosage: 2 GM (2 GM, 1 IN 1 D), INTRAVENOUS DRIP
     Route: 041
     Dates: start: 20120116, end: 20120129
  5. GARAMYCIN [Suspect]
     Indication: ACUTE ENDOCARDITIS
     Dosage: 320 MG (320 MG, 1 IN 1 D), INTRAVENOUS DRIP
     Route: 041
     Dates: start: 20120116, end: 20120129
  6. METRONIDAZOLE [Concomitant]
  7. FLUTICASONE PROPIONATE [Concomitant]
  8. TORSEMIDE [Suspect]
     Dosage: 10 MG (10 MG, 1 IN 1 D), ORAL
     Route: 048
     Dates: end: 20120206

REACTIONS (4)
  - RENAL FAILURE [None]
  - VESTIBULAR ATAXIA [None]
  - BALANCE DISORDER [None]
  - HYPOKALAEMIA [None]
